FAERS Safety Report 4970378-9 (Version None)
Quarter: 2006Q2

REPORT INFORMATION
  Report Type: 
  Country: None (occurrence: None)
  Receive Date: 20060412
  Receipt Date: 20060407
  Transmission Date: 20061013
  Serious: Yes (Hospitalization, Other)
  Sender: FDA-Public Use
  Company Number: US-GLAXOSMITHKLINE-A0600943A

PATIENT
  Age: 66 Year
  Sex: Male

DRUGS (4)
  1. EPZICOM [Suspect]
     Indication: HIV INFECTION
     Dosage: 1TAB PER DAY
     Route: 048
     Dates: start: 20060325, end: 20060405
  2. KALETRA [Concomitant]
  3. ZOLADEX [Concomitant]
  4. IBUPROFEN [Concomitant]

REACTIONS (3)
  - DIARRHOEA [None]
  - HYPOTENSION [None]
  - PYREXIA [None]
